FAERS Safety Report 6970649-0 (Version None)
Quarter: 2010Q3

REPORT INFORMATION
  Report Type: 
  Country: None (occurrence: None)
  Receive Date: 20100908
  Receipt Date: 20100827
  Transmission Date: 20110219
  Serious: Yes (Other)
  Sender: FDA-Public Use
  Company Number: US-PFIZER INC-2010080912

PATIENT
  Sex: Female

DRUGS (10)
  1. GENOTROPIN [Suspect]
     Indication: OFF LABEL USE
  2. THYROID TAB [Concomitant]
     Indication: THYROID DISORDER
  3. HYDROCHLOROTHIAZIDE [Concomitant]
  4. ACETYLSALICYLIC ACID [Concomitant]
  5. TESTOSTERONE [Concomitant]
  6. COD-LIVER OIL [Concomitant]
  7. LYCOPENE [Concomitant]
  8. VITAMIN D [Concomitant]
  9. DIINDOLYLMETHANE [Concomitant]
  10. DEHYDROEPIANDROSTERONE [Concomitant]

REACTIONS (2)
  - MENOPAUSE [None]
  - THYROID FUNCTION TEST ABNORMAL [None]
